FAERS Safety Report 23205286 (Version 1)
Quarter: 2023Q4

REPORT INFORMATION
  Report Type: Report from Study
  Country: US (occurrence: US)
  Receive Date: 20231120
  Receipt Date: 20231120
  Transmission Date: 20240110
  Serious: Yes (Life-Threatening, Hospitalization, Other)
  Sender: FDA-Public Use
  Company Number: US-SA-2023SA355936

PATIENT
  Age: 47 Year
  Sex: Male

DRUGS (18)
  1. OXALIPLATIN [Suspect]
     Active Substance: OXALIPLATIN
     Indication: Colorectal cancer
     Dosage: 179 MG, TOTAL
     Route: 041
     Dates: start: 20220118, end: 20220118
  2. OXALIPLATIN [Suspect]
     Active Substance: OXALIPLATIN
     Dosage: 179 MG, TOTAL
     Route: 041
     Dates: start: 20220201, end: 20220201
  3. OXALIPLATIN [Suspect]
     Active Substance: OXALIPLATIN
     Dosage: 143 MG, TOTAL
     Route: 041
     Dates: start: 20220215, end: 20220613
  4. ETRUMADENANT [Suspect]
     Active Substance: ETRUMADENANT
     Indication: Colorectal cancer
     Dosage: 150 MG, TOTAL
     Route: 048
     Dates: start: 20220118, end: 20220214
  5. ZIMBERELIMAB [Suspect]
     Active Substance: ZIMBERELIMAB
     Indication: Colorectal cancer
     Dosage: 480 MG, TOTAL
     Route: 041
  6. LEUCOVORIN [Suspect]
     Active Substance: LEUCOVORIN\LEUCOVORIN CALCIUM
     Indication: Colorectal cancer
     Dosage: 400 MG, TOTAL
     Route: 041
     Dates: start: 20220118, end: 20220613
  7. LEUCOVORIN [Suspect]
     Active Substance: LEUCOVORIN\LEUCOVORIN CALCIUM
     Dosage: 400 MG, TOTAL
     Dates: start: 20220718
  8. FLUOROURACIL [Suspect]
     Active Substance: FLUOROURACIL
     Indication: Colorectal cancer
     Dosage: 5040 MG, TOTAL
     Route: 041
     Dates: start: 20220118, end: 20220613
  9. FLUOROURACIL [Suspect]
     Active Substance: FLUOROURACIL
     Dosage: 4728 MG, TOTAL
     Route: 041
     Dates: start: 20220718, end: 20220718
  10. BEVACIZUMAB [Suspect]
     Active Substance: BEVACIZUMAB
     Indication: Colorectal cancer
     Dosage: 455 MG, TOTAL
     Route: 041
     Dates: start: 20220118, end: 20220613
  11. XARELTO [Concomitant]
     Active Substance: RIVAROXABAN
     Dosage: UNK
     Dates: start: 20200701
  12. POTASSIUM CHLORIDE [Concomitant]
     Active Substance: POTASSIUM CHLORIDE
     Dosage: UNK
     Dates: start: 20210101
  13. SODIUM CHLORIDE [Concomitant]
     Active Substance: SODIUM CHLORIDE
     Dosage: UNK
     Dates: start: 20220118
  14. DEXAMETHASONE [Concomitant]
     Active Substance: DEXAMETHASONE
     Dosage: UNK
     Dates: start: 20220118
  15. 5% DEXTROSE AND NORMAL SALINE INFUSION [Concomitant]
  16. DIPHENHYDRAMINE [Concomitant]
     Active Substance: DIPHENHYDRAMINE
     Dosage: UNK
     Dates: start: 20220215
  17. ACETAMINOPHEN [Concomitant]
     Active Substance: ACETAMINOPHEN
     Dosage: UNK
     Dates: start: 20220217
  18. IBUPROFEN [Concomitant]
     Active Substance: IBUPROFEN
     Dosage: UNK
     Dates: start: 20220411

REACTIONS (2)
  - Acute kidney injury [Recovered/Resolved with Sequelae]
  - Platelet count decreased [Recovered/Resolved]

NARRATIVE: CASE EVENT DATE: 20220617
